FAERS Safety Report 12794297 (Version 2)
Quarter: 2017Q1

REPORT INFORMATION
  Report Type: Spontaneous
  Country: US (occurrence: US)
  Receive Date: 20160929
  Receipt Date: 20170116
  Transmission Date: 20170428
  Serious: No
  Sender: FDA-Public Use
  Company Number: US-JNJFOC-20160902508

PATIENT
  Sex: Male

DRUGS (2)
  1. RISPERIDONE. [Suspect]
     Active Substance: RISPERIDONE
     Indication: PRODUCT USED FOR UNKNOWN INDICATION
     Route: 048
  2. RISPERDAL [Suspect]
     Active Substance: RISPERIDONE
     Indication: DEPRESSION
     Dosage: DOSE: 0.25 MG, 0.50 MG, 1.00 MG, 2.00 MG.
     Route: 048
     Dates: start: 2002, end: 2016

REACTIONS (5)
  - Abnormal weight gain [Unknown]
  - Gynaecomastia [Unknown]
  - Product use issue [Unknown]
  - Hyperglycaemia [Unknown]
  - Off label use [Unknown]

NARRATIVE: CASE EVENT DATE: 2002
